FAERS Safety Report 10234286 (Version 1)
Quarter: 2014Q2

REPORT INFORMATION
  Report Type: Spontaneous
  Country: CN (occurrence: CN)
  Receive Date: 20140612
  Receipt Date: 20140612
  Transmission Date: 20141212
  Serious: Yes (Other)
  Sender: FDA-Public Use
  Company Number: CN-ROCHE-1413966

PATIENT
  Sex: Male
  Weight: 62 kg

DRUGS (4)
  1. ROCEPHIN [Suspect]
     Indication: PNEUMONIA
     Route: 041
     Dates: start: 20131114, end: 20131114
  2. PLAVIX [Concomitant]
     Indication: NEPHROLITHIASIS
     Route: 048
     Dates: start: 20131104, end: 20131114
  3. ASPIRIN ENTERIC COATED [Concomitant]
     Indication: LUNG INFECTION
     Route: 048
     Dates: start: 20131104, end: 20131114
  4. CLEXANE [Concomitant]
     Indication: CORONARY ARTERY DISEASE
     Route: 058
     Dates: start: 20131107, end: 20131110

REACTIONS (6)
  - Thrombocytopenia [Recovered/Resolved]
  - Chills [Unknown]
  - Body temperature increased [Unknown]
  - Epistaxis [Recovering/Resolving]
  - Petechiae [Recovering/Resolving]
  - Coagulation test abnormal [Unknown]
